FAERS Safety Report 11987800 (Version 2)
Quarter: 2016Q1

REPORT INFORMATION
  Report Type: Spontaneous
  Country: US (occurrence: US)
  Receive Date: 20160202
  Receipt Date: 20160308
  Transmission Date: 20160526
  Serious: No
  Sender: FDA-Public Use
  Company Number: US-JNJFOC-20150716892

PATIENT
  Age: 74 Year
  Sex: Female

DRUGS (10)
  1. PRILOSEC [Concomitant]
     Active Substance: OMEPRAZOLE MAGNESIUM
  2. MUCINEX [Concomitant]
     Active Substance: GUAIFENESIN
  3. ACYCLOVIR. [Concomitant]
     Active Substance: ACYCLOVIR
  4. LOVASTATIN. [Concomitant]
     Active Substance: LOVASTATIN
  5. TYLENOL [Concomitant]
     Active Substance: ACETAMINOPHEN
  6. LORAZEPAM. [Concomitant]
     Active Substance: LORAZEPAM
  7. ALLOPURINOL. [Concomitant]
     Active Substance: ALLOPURINOL
  8. IMBRUVICA [Suspect]
     Active Substance: IBRUTINIB
     Indication: CHRONIC LYMPHOCYTIC LEUKAEMIA
     Route: 048
     Dates: start: 20150624
  9. LEXAPRO [Concomitant]
     Active Substance: ESCITALOPRAM OXALATE
  10. CALCIUM CARBONATE VITAMIN D [Concomitant]
     Active Substance: CALCIUM CARBONATE\VITAMIN D

REACTIONS (7)
  - Frequent bowel movements [Unknown]
  - Feeling abnormal [Unknown]
  - Fatigue [Unknown]
  - Arthralgia [Unknown]
  - Rash [Unknown]
  - Rash erythematous [Not Recovered/Not Resolved]
  - Petechiae [Unknown]

NARRATIVE: CASE EVENT DATE: 2015
